FAERS Safety Report 6998519-2 (Version None)
Quarter: 2010Q3

REPORT INFORMATION
  Report Type: 
  Country: None (occurrence: None)
  Receive Date: 20100920
  Receipt Date: 20091110
  Transmission Date: 20110219
  Serious: No
  Sender: FDA-Public Use
  Company Number: US-ASTRAZENECA-2006UW23011

PATIENT
  Age: 13995 Day
  Sex: Female
  Weight: 157.4 kg

DRUGS (27)
  1. SEROQUEL [Suspect]
     Indication: DEPRESSION
     Dosage: DOSE FLUCTUATED FROM 50 MG TO 1200 MG
     Route: 048
     Dates: start: 20010813
  2. SEROQUEL [Suspect]
     Indication: SCHIZOPHRENIA
     Dosage: DOSE FLUCTUATED FROM 50 MG TO 1200 MG
     Route: 048
     Dates: start: 20010813
  3. SEROQUEL [Suspect]
     Indication: BIPOLAR DISORDER
     Dosage: DOSE FLUCTUATED FROM 50 MG TO 1200 MG
     Route: 048
     Dates: start: 20010813
  4. SEROQUEL [Suspect]
     Indication: INSOMNIA
     Dosage: DOSE FLUCTUATED FROM 50 MG TO 1200 MG
     Route: 048
     Dates: start: 20010813
  5. SEROQUEL [Suspect]
     Indication: SLEEP DISORDER
     Dosage: DOSE FLUCTUATED FROM 50 MG TO 1200 MG
     Route: 048
     Dates: start: 20010813
  6. SEROQUEL [Suspect]
     Indication: MOOD SWINGS
     Dosage: DOSE FLUCTUATED FROM 50 MG TO 1200 MG
     Route: 048
     Dates: start: 20010813
  7. SEROQUEL [Suspect]
     Indication: PARANOIA
     Dosage: DOSE FLUCTUATED FROM 50 MG TO 1200 MG
     Route: 048
     Dates: start: 20010813
  8. SEROQUEL [Suspect]
     Dosage: 800 MG TO 1100 MG
     Route: 048
     Dates: start: 20020101, end: 20060101
  9. SEROQUEL [Suspect]
     Dosage: 800 MG TO 1100 MG
     Route: 048
     Dates: start: 20020101, end: 20060101
  10. SEROQUEL [Suspect]
     Dosage: 800 MG TO 1100 MG
     Route: 048
     Dates: start: 20020101, end: 20060101
  11. SEROQUEL [Suspect]
     Dosage: 800 MG TO 1100 MG
     Route: 048
     Dates: start: 20020101, end: 20060101
  12. SEROQUEL [Suspect]
     Dosage: 800 MG TO 1100 MG
     Route: 048
     Dates: start: 20020101, end: 20060101
  13. SEROQUEL [Suspect]
     Dosage: 800 MG TO 1100 MG
     Route: 048
     Dates: start: 20020101, end: 20060101
  14. SEROQUEL [Suspect]
     Dosage: 800 MG TO 1100 MG
     Route: 048
     Dates: start: 20020101, end: 20060101
  15. ABILIFY [Concomitant]
     Dates: start: 20070101
  16. LEXAPRO [Concomitant]
     Indication: DEPRESSION
     Dates: start: 20020824
  17. LEXAPRO [Concomitant]
     Indication: SLEEP DISORDER
     Dates: start: 20020824
  18. LEXAPRO [Concomitant]
     Indication: MOOD SWINGS
     Dates: start: 20020824
  19. RISPERDAL [Concomitant]
     Dates: start: 20020101
  20. RISPERDAL [Concomitant]
     Dosage: 1 MG TO 3 MG
     Dates: start: 20001012
  21. GEODON [Concomitant]
     Dates: start: 20060101
  22. GEODON [Concomitant]
     Dates: end: 20060426
  23. ZYPREXA [Concomitant]
     Dates: start: 20050101, end: 20060101
  24. ZYPREXA [Concomitant]
     Dates: start: 20000601
  25. AVANDIA [Concomitant]
     Indication: TYPE 2 DIABETES MELLITUS
     Dosage: 4 MG TO 8 MG
     Dates: start: 20010301
  26. WELLBUTRIN [Concomitant]
     Indication: DEPRESSION
     Dosage: 150 MG TO 300 MG
     Dates: start: 20020703, end: 20060426
  27. ZOLOFT [Concomitant]
     Dosage: 100 TO 150 MG
     Dates: start: 20000414

REACTIONS (3)
  - DEPRESSED LEVEL OF CONSCIOUSNESS [None]
  - DIABETES MELLITUS [None]
  - DIABETES MELLITUS INADEQUATE CONTROL [None]
